FAERS Safety Report 8479548-9 (Version None)
Quarter: 2012Q2

REPORT INFORMATION
  Report Type: 
  Country: None (occurrence: None)
  Receive Date: 20120629
  Receipt Date: 20120627
  Transmission Date: 20120825
  Serious: Yes (Other)
  Sender: FDA-Public Use
  Company Number: US-PFIZER INC-2012155170

PATIENT

DRUGS (2)
  1. LEVOXYL [Suspect]
     Dosage: UNK
  2. TOVIAZ [Suspect]
     Dosage: UNK

REACTIONS (6)
  - VISUAL IMPAIRMENT [None]
  - CATARACT [None]
  - INSOMNIA [None]
  - CARPAL TUNNEL SYNDROME [None]
  - PAIN IN EXTREMITY [None]
  - POLLAKIURIA [None]
